FAERS Safety Report 13502283 (Version 2)
Quarter: 2018Q3

REPORT INFORMATION
  Report Type: Spontaneous
  Country: FR (occurrence: FR)
  Receive Date: 20170502
  Receipt Date: 20180702
  Transmission Date: 20181010
  Serious: Yes (Hospitalization)
  Sender: FDA-Public Use
  Company Number: FR-ACCORD-051012

PATIENT
  Age: 73 Year
  Sex: Male
  Weight: 54.7 kg

DRUGS (11)
  1. OXALIPLATIN HOSPIRA [Suspect]
     Active Substance: OXALIPLATIN
     Indication: PERIPHERAL T-CELL LYMPHOMA UNSPECIFIED RECURRENT
     Route: 042
     Dates: start: 20170215, end: 20170323
  2. BACTRIM [Suspect]
     Active Substance: SULFAMETHOXAZOLE\TRIMETHOPRIM
     Indication: OPPORTUNISTIC INFECTION PROPHYLAXIS
     Dosage: 1 DF EVERY 3 WEEKS
     Route: 048
     Dates: start: 20170201, end: 20170323
  3. COVERSYL [Concomitant]
     Active Substance: PERINDOPRIL
     Dosage: STRENGTH: 2.5 MG
     Route: 048
     Dates: start: 201609, end: 20170321
  4. SERETIDE [Concomitant]
     Active Substance: FLUTICASONE PROPIONATE\SALMETEROL XINAFOATE
     Route: 045
     Dates: start: 2015
  5. PERMIXON [Concomitant]
     Active Substance: HERBALS\SAW PALMETTO
     Dosage: STRENGTH: 160 MG
     Route: 048
     Dates: start: 2015, end: 20170321
  6. AUGMENTIN [Suspect]
     Active Substance: AMOXICILLIN\CLAVULANATE POTASSIUM
     Indication: PYREXIA
     Dosage: STRENGTH: 1 G /125 MG
     Route: 048
     Dates: start: 20170317, end: 20170323
  7. SPECIAFOLDINE [Suspect]
     Active Substance: FOLIC ACID
     Indication: PRODUCT USED FOR UNKNOWN INDICATION
     Dosage: STRENGTH: 5 MG
     Route: 048
     Dates: start: 20170131, end: 20170323
  8. GEMCITABINE INTAS [Suspect]
     Active Substance: GEMCITABINE HYDROCHLORIDE
     Indication: PERIPHERAL T-CELL LYMPHOMA UNSPECIFIED RECURRENT
     Dosage: STRENGTH: 100 MG/ML
     Route: 042
     Dates: start: 20170215, end: 20170323
  9. VALACICLOVIR [Suspect]
     Active Substance: VALACYCLOVIR HYDROCHLORIDE
     Indication: OPPORTUNISTIC INFECTION PROPHYLAXIS
     Route: 048
     Dates: start: 20170131, end: 20170323
  10. XATRAL LP [Suspect]
     Active Substance: ALFUZOSIN
     Indication: PRODUCT USED FOR UNKNOWN INDICATION
     Dosage: STRENGTH: 10 MG
     Route: 048
     Dates: start: 201701, end: 20170323
  11. PRAXILENE [Concomitant]
     Active Substance: NAFRONYL
     Dosage: STRENGTH: 200 MG
     Route: 048
     Dates: start: 2017, end: 20170321

REACTIONS (5)
  - Dermatitis exfoliative generalised [Recovering/Resolving]
  - Liver injury [Unknown]
  - Mouth ulceration [Unknown]
  - Off label use [Unknown]
  - Mucosal toxicity [Unknown]

NARRATIVE: CASE EVENT DATE: 20170310
